FAERS Safety Report 25330636 (Version 1)
Quarter: 2025Q2

REPORT INFORMATION
  Report Type: Spontaneous
  Country: DE (occurrence: DE)
  Receive Date: 20250519
  Receipt Date: 20250519
  Transmission Date: 20250717
  Serious: Yes (Other)
  Sender: TAKEDA
  Company Number: DE-TAKEDA-2025TUS045193

PATIENT
  Age: 48 Year
  Sex: Male

DRUGS (3)
  1. ENTYVIO [Suspect]
     Active Substance: VEDOLIZUMAB
     Indication: Colitis ulcerative
  2. VITAMIN D [Concomitant]
     Active Substance: VITAMIN D NOS
  3. Salofalk [Concomitant]

REACTIONS (1)
  - Acute myocardial infarction [Unknown]
